FAERS Safety Report 4332596-2 (Version None)
Quarter: 2004Q2

REPORT INFORMATION
  Report Type: 
  Country: None (occurrence: None)
  Receive Date: 20040401
  Receipt Date: 20040325
  Transmission Date: 20050107
  Serious: Yes (Other)
  Sender: FDA-Public Use
  Company Number: 2004205517FR

PATIENT
  Age: 56 Year
  Sex: Female

DRUGS (1)
  1. FRAGMIN [Suspect]
     Indication: SURGERY
     Dosage: 2500 IU, QD, UNK
     Dates: start: 20040201

REACTIONS (2)
  - POST PROCEDURAL COMPLICATION [None]
  - THROMBOCYTHAEMIA [None]
